FAERS Safety Report 9764838 (Version 1)
Quarter: 2013Q4

REPORT INFORMATION
  Report Type: Spontaneous
  Country: US (occurrence: US)
  Receive Date: 20131217
  Receipt Date: 20131217
  Transmission Date: 20140711
  Serious: No
  Sender: FDA-Public Use
  Company Number: US-BIOGENIDEC-2013BI111416

PATIENT
  Sex: Female

DRUGS (6)
  1. TECFIDERA [Suspect]
     Indication: MULTIPLE SCLEROSIS
     Route: 048
     Dates: start: 20131029
  2. DOXYCYCLINE HYCLATE [Concomitant]
  3. GABAPENTIN [Concomitant]
  4. METHADONE HCL [Concomitant]
  5. REQUIP [Concomitant]
  6. RHINOCORT AQUA [Concomitant]

REACTIONS (2)
  - Alopecia [Unknown]
  - Heart rate increased [Unknown]
